FAERS Safety Report 24016385 (Version 1)
Quarter: 2024Q2

REPORT INFORMATION
  Report Type: Spontaneous
  Country: CA (occurrence: CA)
  Receive Date: 20240626
  Receipt Date: 20240626
  Transmission Date: 20240716
  Serious: Yes (Hospitalization, Other)
  Sender: FDA-Public Use
  Company Number: CA-002147023-NVSC2024CA132854

PATIENT
  Age: 77 Year
  Sex: Male
  Weight: 65.76 kg

DRUGS (1)
  1. ZOLEDRONIC ACID [Suspect]
     Active Substance: ZOLEDRONIC ACID
     Indication: Osteoporosis
     Dosage: 100 MG (1 EVERY 1 YEAR)
     Route: 042

REACTIONS (1)
  - Cerebrovascular accident [Unknown]
